FAERS Safety Report 5323982-2 (Version None)
Quarter: 2007Q2

REPORT INFORMATION
  Report Type: 
  Country: None (occurrence: None)
  Receive Date: 20070509
  Receipt Date: 20070509
  Transmission Date: 20071010
  Serious: Yes (Hospitalization)
  Sender: FDA-Public Use
  Company Number: None

PATIENT
  Age: 77 Year
  Sex: Male

DRUGS (13)
  1. IBUPROFEN [Suspect]
     Indication: OSTEOARTHRITIS
  2. PREDNISONE [Suspect]
     Indication: BRONCHITIS
     Dates: start: 20070312, end: 20070326
  3. NITROGLYCERIN [Concomitant]
  4. LEVALBUTEROL HCL [Concomitant]
  5. ADVAIR DISKUS 100/50 [Concomitant]
  6. ACETAMINOPHEN AND CODEINE PHOSPHATE [Concomitant]
  7. SIMVASTATIN [Concomitant]
  8. ASPIRIN [Concomitant]
  9. DOCUSATE NA [Concomitant]
  10. LISINOPRIL [Concomitant]
  11. OMEPRAZOLE [Concomitant]
  12. ISOSORBIDE MONONITRATE [Concomitant]
  13. PREDNISONE TAB [Concomitant]

REACTIONS (4)
  - DIZZINESS [None]
  - FATIGUE [None]
  - GASTRIC ULCER [None]
  - MELAENA [None]
